FAERS Safety Report 9486715 (Version 1)
Quarter: 2013Q3

REPORT INFORMATION
  Report Type: Spontaneous
  Country: US (occurrence: None)
  Receive Date: 20130827
  Receipt Date: 20130827
  Transmission Date: 20140515
  Serious: Yes (Life-Threatening, Hospitalization)
  Sender: FDA-Public Use
  Company Number: None

PATIENT
  Age: 66 None
  Sex: Female
  Weight: 86.18 kg

DRUGS (11)
  1. TIZANIDINE [Suspect]
     Indication: MYALGIA
     Dosage: 4 MG 1/2 TAB(2 MG) AT BEDTIME BY MOUTH
     Route: 048
     Dates: start: 20130216, end: 20130713
  2. TIZANIDINE [Suspect]
     Indication: FIBROMYALGIA
     Dosage: 4 MG 1/2 TAB(2 MG) AT BEDTIME BY MOUTH
     Route: 048
     Dates: start: 20130216, end: 20130713
  3. LOTRIL [Concomitant]
  4. PLAQUENIL [Concomitant]
  5. SYNTHROID [Concomitant]
  6. ATENOLOL [Concomitant]
  7. NEURONTIN [Concomitant]
  8. CALCIUM WITH VITAMIN D [Concomitant]
  9. VITAMIN D 3 [Concomitant]
  10. FOLIC ACID [Concomitant]
  11. LASIX [Concomitant]

REACTIONS (3)
  - Thrombosis [None]
  - Nephrolithiasis [None]
  - Pulmonary embolism [None]
